FAERS Safety Report 6676820-X (Version None)
Quarter: 2010Q1

REPORT INFORMATION
  Report Type: 
  Country: None (occurrence: None)
  Receive Date: 20100331
  Receipt Date: 20090717
  Transmission Date: 20100710
  Serious: No
  Sender: FDA-Public Use
  Company Number: 2009-00547

PATIENT
  Age: 57 Year
  Sex: Female

DRUGS (2)
  1. ZICAM COLD REMEDY GEL SWABS [Suspect]
     Dosage: ^18 MONTHS AGO^
  2. ZICAM COLD REMEDY NASAL GEL [Suspect]
     Dosage: ^18 MONTHS AGO^

REACTIONS (1)
  - ANOSMIA [None]
